FAERS Safety Report 4873543-4 (Version None)
Quarter: 2006Q1

REPORT INFORMATION
  Report Type: 
  Country: None (occurrence: None)
  Receive Date: 20060105
  Receipt Date: 20050707
  Transmission Date: 20060701
  Serious: Yes (Hospitalization, Other)
  Sender: FDA-Public Use
  Company Number: CA-MERCK-0507CAN00088

PATIENT
  Age: 62 Year
  Sex: Male
  Weight: 125 kg

DRUGS (25)
  1. VIOXX [Suspect]
     Indication: RHEUMATOID ARTHRITIS
     Route: 048
     Dates: start: 19990101, end: 20040901
  2. ATORVASTATIN CALCIUM [Concomitant]
     Indication: BLOOD CHOLESTEROL INCREASED
     Route: 065
     Dates: start: 19990101
  3. ATORVASTATIN CALCIUM [Concomitant]
     Route: 065
  4. ATORVASTATIN CALCIUM [Concomitant]
     Route: 065
  5. CILAZAPRIL [Concomitant]
     Indication: BLOOD PRESSURE ABNORMAL
     Route: 065
  6. CILAZAPRIL [Concomitant]
     Route: 065
  7. OMEPRAZOLE [Concomitant]
     Indication: DYSPEPSIA
     Route: 065
  8. METFORMIN [Concomitant]
     Indication: DIABETES MELLITUS
     Route: 065
  9. METFORMIN [Concomitant]
     Route: 065
  10. [THERAPY UNSPECIFIED] [Concomitant]
     Route: 065
  11. FELODIPINE [Concomitant]
     Indication: BLOOD PRESSURE ABNORMAL
     Route: 065
  12. FELODIPINE [Concomitant]
     Route: 065
     Dates: start: 20030901
  13. LABETALOL HYDROCHLORIDE [Concomitant]
     Indication: BLOOD PRESSURE ABNORMAL
     Route: 065
  14. CAPTOPRIL [Concomitant]
     Indication: BLOOD PRESSURE ABNORMAL
     Route: 065
  15. FUROSEMIDE SODIUM [Concomitant]
     Indication: HYPERTENSION
     Route: 065
     Dates: start: 20020701
  16. ASPIRIN [Concomitant]
     Route: 065
     Dates: start: 20020701
  17. CLOPIDOGREL BISULFATE [Concomitant]
     Route: 065
     Dates: start: 20020701
  18. INSULIN HUMAN [Concomitant]
     Indication: DIABETES MELLITUS
     Route: 065
  19. PIOGLITAZONE HYDROCHLORIDE [Concomitant]
     Indication: DIABETES MELLITUS
     Route: 065
  20. ROSIGLITAZONE MALEATE [Concomitant]
     Route: 048
  21. ACETAMINOPHEN AND CODEINE PHOSPHATE [Concomitant]
     Indication: BACK PAIN
     Route: 065
     Dates: start: 20000801
  22. CELECOXIB [Concomitant]
     Route: 048
     Dates: start: 20000101, end: 20000427
  23. GLYBURIDE [Concomitant]
     Route: 065
  24. CIMETIDINE [Concomitant]
     Route: 065
  25. INSULIN, BIPHASIC ISOPHANE [INJECTION] [Concomitant]
     Route: 065

REACTIONS (7)
  - CARDIAC FAILURE CONGESTIVE [None]
  - CHEST PAIN [None]
  - CORONARY ARTERY DISEASE [None]
  - DEAFNESS NEUROSENSORY [None]
  - EPISTAXIS [None]
  - MYOCARDIAL INFARCTION [None]
  - PULMONARY OEDEMA [None]
